FAERS Safety Report 5035188-5 (Version None)
Quarter: 2006Q2

REPORT INFORMATION
  Report Type: 
  Country: None (occurrence: None)
  Receive Date: 20060522
  Receipt Date: 20051129
  Transmission Date: 20061013
  Serious: Yes (Other)
  Sender: FDA-Public Use
  Company Number: PHEH2005US12995

PATIENT
  Age: 49 Year
  Sex: Male

DRUGS (1)
  1. TEGRETOL-XR [Suspect]
     Indication: CONVULSION
     Dosage: 900 MG/DAY,ORAL
     Route: 048
     Dates: end: 20041101

REACTIONS (2)
  - ARRHYTHMIA [None]
  - CARDIAC ABLATION [None]
